FAERS Safety Report 15617007 (Version 2)
Quarter: 2019Q1

REPORT INFORMATION
  Report Type: Report from Study
  Country: GB (occurrence: GB)
  Receive Date: 20181114
  Receipt Date: 20190109
  Transmission Date: 20190417
  Serious: Yes (Death, Hospitalization, Other)
  Sender: FDA-Public Use
  Company Number: GB-TEVA-2018-GB-974807

PATIENT
  Age: 80 Year
  Sex: Male

DRUGS (27)
  1. BISOPROLOL FUMARATE. [Concomitant]
     Active Substance: BISOPROLOL FUMARATE
     Dosage: 5 MILLIGRAM DAILY;
     Route: 048
  2. AMOXYCILLIN [Concomitant]
     Active Substance: AMOXICILLIN
     Indication: PNEUMONIA
     Dosage: DOSAGE FORM: UNKNOWN
     Route: 065
     Dates: start: 20050604
  3. FRUSEMIDE [Concomitant]
     Active Substance: FUROSEMIDE
     Indication: HYPERTENSION
     Dosage: 80 MILLIGRAM DAILY; 40MG INCREASED TO 80MG, DECREASED TO 40MG, THEN 40MG BD AND FINALLY 40MG AM AND
     Route: 048
     Dates: start: 20000511
  4. DOXAZOSIN [Concomitant]
     Active Substance: DOXAZOSIN\DOXAZOSIN MESYLATE
     Indication: HYPERTENSION
     Dosage: 6 MILLIGRAM DAILY; 8MG, DECREASED TO 4MG, INCREASED TO 6MG, THEN 8MG AND THEN DECREASED TO 6MG.
     Route: 048
     Dates: start: 19960101, end: 20040726
  5. HYDRALAZINE HYDROCHLORIDE. [Concomitant]
     Active Substance: HYDRALAZINE HYDROCHLORIDE
     Dosage: 25 MILLIGRAM DAILY; DOSAGE FORM: UNKNOWN
     Route: 048
     Dates: start: 20050531
  6. VANCOMYCIN [Concomitant]
     Active Substance: VANCOMYCIN
     Indication: DIARRHOEA
     Dosage: 125 MILLIGRAM DAILY; DOSAGE FORM: UNKNOWN
     Route: 048
     Dates: start: 20050726
  7. FRUSEMIDE [Concomitant]
     Active Substance: FUROSEMIDE
     Dosage: 40 MILLIGRAM DAILY; DOSAGE FORM: UNSPECIFIED, DOSAGE FORM: UNSPECIFIED, 40MG AM, 80 MG MIDDAY
     Route: 048
     Dates: start: 20000511
  8. TRANDOLAPRIL. [Concomitant]
     Active Substance: TRANDOLAPRIL
     Indication: HYPERTENSION
     Dosage: 1 MILLIGRAM DAILY; DOSAGE FORM: UNKNOWN
     Route: 048
     Dates: start: 20050710
  9. CIPROFLOXACIN. [Concomitant]
     Active Substance: CIPROFLOXACIN
     Indication: PNEUMONIA
     Dosage: DOSAGE FORM: UNKNOWN
     Route: 065
  10. DOXAZOSIN [Concomitant]
     Active Substance: DOXAZOSIN\DOXAZOSIN MESYLATE
     Dosage: 4 MILLIGRAM DAILY; DOSAGE FORM: UNSPECIFIED
     Route: 048
     Dates: start: 19960101
  11. METRONIDAZOLE. [Concomitant]
     Active Substance: METRONIDAZOLE
     Indication: DIARRHOEA
     Dosage: 400 MILLIGRAM DAILY; DOSAGE FORM: UNKNOWN
     Route: 048
     Dates: start: 20050628
  12. AMITRIPTYLINE [Concomitant]
     Active Substance: AMITRIPTYLINE
     Indication: ASTHENIA
     Route: 048
     Dates: start: 20050114, end: 20050127
  13. DOXAZOSIN [Concomitant]
     Active Substance: DOXAZOSIN\DOXAZOSIN MESYLATE
     Indication: HYPERTENSION
     Dosage: 8 MILLIGRAM DAILY; DOSAGE FORM: UNSPECIFIED
     Route: 048
     Dates: start: 19960101
  14. CODEINE LINCTUS [Concomitant]
     Active Substance: CHLOROFORM\CODEINE PHOSPHATE\DRIMIA MARITIMA BULB
     Indication: DIARRHOEA
     Dosage: DOSAGE FORM: UNKNOWN, 5-10 ML AS NECESSARY
     Route: 048
     Dates: start: 20040428
  15. DEFERIPRONE [Concomitant]
     Active Substance: DEFERIPRONE
     Dosage: 500 MILLIGRAM DAILY; DOSAGE FORM: UNKNOWN
     Route: 048
     Dates: start: 20050204, end: 20050223
  16. AMLODIPINE [Concomitant]
     Active Substance: AMLODIPINE BESYLATE
     Indication: HYPERTENSION
     Dosage: 5 MILLIGRAM DAILY; DOSAGE FORM: UNSPECIFIED
     Route: 048
     Dates: start: 20020624, end: 20040726
  17. DEFERIPRONE [Concomitant]
     Active Substance: DEFERIPRONE
     Indication: HYPERAESTHESIA
     Dosage: 1 GRAM DAILY; DOSAGE FORM: UNKNOWN
     Route: 048
     Dates: start: 20050204, end: 20050223
  18. ALFACALCIDOL [Concomitant]
     Active Substance: ALFACALCIDOL
     Indication: HYPERPARATHYROIDISM
     Dosage: 250 NANOGRAM DAILY; DOSAGE FORM: UNSPECIFIED
     Route: 065
     Dates: start: 20010927
  19. OMEPRAZOLE. [Concomitant]
     Active Substance: OMEPRAZOLE
     Indication: VOMITING
     Dosage: 20 MILLIGRAM DAILY; DOSAGE FORM: UNKNOWN
     Route: 048
     Dates: start: 20050110
  20. ATENOLOL. [Concomitant]
     Active Substance: ATENOLOL
     Indication: ANGINA PECTORIS
     Dosage: 25 MILLIGRAM DAILY; DOSAGE FORM: UNSPECIFIED
     Route: 048
     Dates: start: 19981101
  21. DEFEROXAMINE MESILATE [Concomitant]
     Active Substance: DEFEROXAMINE MESYLATE
     Indication: CHELATION THERAPY
     Dosage: WITH TRANSFUSIONS
     Route: 042
     Dates: start: 200404
  22. CLOPIDOGREL [Suspect]
     Active Substance: CLOPIDOGREL BISULFATE
     Indication: ANTIPLATELET THERAPY
     Dosage: 75 MILLIGRAM DAILY; DOSAGE FORM: UNSPECIFIED
     Route: 048
     Dates: start: 19990121, end: 20020802
  23. PARACETAMOL [Concomitant]
     Active Substance: ACETAMINOPHEN
     Indication: HEADACHE
     Dosage: 1 GRAM DAILY; DOSAGE FORM: UNKNOWN, AS NECESSARY
     Route: 048
     Dates: start: 20050510
  24. SIMVASTATIN. [Concomitant]
     Active Substance: SIMVASTATIN
     Indication: HYPERCHOLESTEROLAEMIA
     Dosage: 10 MILLIGRAM DAILY; ONGOING
     Route: 048
     Dates: start: 19960502
  25. EPREX [Suspect]
     Active Substance: ERYTHROPOIETIN
     Indication: ANAEMIA
     Route: 058
     Dates: start: 20020724, end: 20020802
  26. EPREX [Suspect]
     Active Substance: ERYTHROPOIETIN
     Route: 058
     Dates: start: 20011001, end: 20020723
  27. FRUSEMIDE [Concomitant]
     Active Substance: FUROSEMIDE
     Indication: HYPERTENSION
     Dosage: 40 MILLIGRAM DAILY; DOSAGE FORM: UNSPECIFIED
     Route: 048
     Dates: start: 20000511

REACTIONS (26)
  - Fatigue [Not Recovered/Not Resolved]
  - Arthralgia [Unknown]
  - Haemorrhoids [Not Recovered/Not Resolved]
  - Anti-erythropoietin antibody positive [Unknown]
  - Purpura [Unknown]
  - Dizziness [Not Recovered/Not Resolved]
  - Drug ineffective [Unknown]
  - Headache [Not Recovered/Not Resolved]
  - Hypertension [Not Recovered/Not Resolved]
  - Pneumonia [Fatal]
  - Aplasia pure red cell [Not Recovered/Not Resolved]
  - Diarrhoea [Not Recovered/Not Resolved]
  - Blood creatine increased [Recovered/Resolved]
  - Hyperaesthesia [Unknown]
  - Hiccups [Recovered/Resolved]
  - Blood pressure increased [Recovered/Resolved]
  - Contusion [Not Recovered/Not Resolved]
  - Joint swelling [Recovered/Resolved]
  - Tremor [Unknown]
  - Drug ineffective [Unknown]
  - Tendonitis [Not Recovered/Not Resolved]
  - Blood creatine increased [Recovered/Resolved]
  - Asthenia [Unknown]
  - Muscle atrophy [Unknown]
  - Hyperaesthesia [Not Recovered/Not Resolved]
  - Pain in extremity [Unknown]

NARRATIVE: CASE EVENT DATE: 200205
